FAERS Safety Report 25125794 (Version 1)
Quarter: 2025Q1

REPORT INFORMATION
  Report Type: Spontaneous
  Country: ES (occurrence: ES)
  Receive Date: 20250326
  Receipt Date: 20250326
  Transmission Date: 20250408
  Serious: Yes (Life-Threatening, Hospitalization)
  Sender: INTERCHEM
  Company Number: ES-HQ SPECIALTY-ES-2025INT000022

PATIENT
  Age: 45 Year
  Sex: Male

DRUGS (4)
  1. DEXMEDETOMIDINE HYDROCHLORIDE [Suspect]
     Active Substance: DEXMEDETOMIDINE HYDROCHLORIDE
     Indication: Alcohol withdrawal syndrome
     Route: 065
     Dates: start: 20250108, end: 20250115
  2. DIAZEPAM [Suspect]
     Active Substance: DIAZEPAM
     Indication: Alcohol withdrawal syndrome
     Dosage: 720 MILLIGRAM, 1 D
     Route: 065
     Dates: start: 20250108, end: 20250117
  3. MIDAZOLAM [Suspect]
     Active Substance: MIDAZOLAM
     Indication: Alcohol withdrawal syndrome
     Route: 065
     Dates: start: 20250108, end: 20250108
  4. DIAZEPAM [Concomitant]
     Active Substance: DIAZEPAM
     Indication: Alcohol withdrawal syndrome
     Route: 065
     Dates: start: 20250108, end: 20250108

REACTIONS (4)
  - Overdose [Recovered/Resolved]
  - Drug interaction [Unknown]
  - Product use in unapproved indication [Unknown]
  - Acute respiratory failure [Recovered/Resolved]

NARRATIVE: CASE EVENT DATE: 20250101
